FAERS Safety Report 7110327-0 (Version None)
Quarter: 2010Q4

REPORT INFORMATION
  Report Type: 
  Country: None (occurrence: None)
  Receive Date: 20101118
  Receipt Date: 20101116
  Transmission Date: 20110411
  Serious: Yes (Disabling, Other)
  Sender: FDA-Public Use
  Company Number: US-PFIZER INC-2010101630

PATIENT
  Sex: Male

DRUGS (2)
  1. CHANTIX [Suspect]
     Indication: SMOKING CESSATION THERAPY
     Dosage: 1 MG, DAILY
     Route: 048
     Dates: start: 20070529
  2. HUMALOG [Concomitant]
     Dosage: 100 MIC/ML
     Dates: start: 20070426, end: 20090626

REACTIONS (4)
  - AFFECT LABILITY [None]
  - DEPRESSION [None]
  - INSOMNIA [None]
  - MENTAL STATUS CHANGES [None]
